FAERS Safety Report 9743152 (Version 1)
Quarter: 2013Q4

REPORT INFORMATION
  Report Type: Spontaneous
  Country: US (occurrence: US)
  Receive Date: 20131210
  Receipt Date: 20131210
  Transmission Date: 20140711
  Serious: No
  Sender: FDA-Public Use
  Company Number: US-GILEAD-2009-0024449

PATIENT
  Sex: Female

DRUGS (14)
  1. LETAIRIS [Suspect]
     Indication: PULMONARY ARTERIAL HYPERTENSION
     Route: 048
     Dates: start: 20090604
  2. LASIX [Concomitant]
  3. ATIVAN [Concomitant]
  4. ASPIRIN [Concomitant]
  5. FLONASE [Concomitant]
  6. CLARITIN [Concomitant]
  7. PREVACID [Concomitant]
  8. ACTONEL [Concomitant]
  9. PRIMIDONE [Concomitant]
  10. LEXAPRO [Concomitant]
  11. PREDNISONE [Concomitant]
  12. PROTONIX [Concomitant]
  13. SINEMET [Concomitant]
  14. DEMECLOCYCLINE HCL [Concomitant]

REACTIONS (1)
  - Anaemia [Unknown]
